FAERS Safety Report 7474383-2 (Version None)
Quarter: 2011Q2

REPORT INFORMATION
  Report Type: 
  Country: None (occurrence: None)
  Receive Date: 20110511
  Receipt Date: 20110415
  Transmission Date: 20111010
  Serious: Yes (Other)
  Sender: FDA-Public Use
  Company Number: US-BAYER-200940035NA

PATIENT
  Age: 54 Year
  Sex: Female
  Weight: 63.492 kg

DRUGS (47)
  1. MAGNEVIST [Suspect]
     Dates: start: 20041015, end: 20041015
  2. ALLOPURINOL [Concomitant]
  3. SENSIPAR [Concomitant]
  4. NORVASC [Concomitant]
  5. PREVACID [Concomitant]
  6. COUMADIN [Concomitant]
  7. CALCITRIOL [Concomitant]
  8. POTASSIUM CHLORIDE [Concomitant]
  9. EPOGEN [Concomitant]
  10. IMDUR [Concomitant]
  11. ALLOPURINOL [Concomitant]
  12. PROCRIT [Concomitant]
  13. GENTAMICIN [Concomitant]
  14. FOSRENOL [Concomitant]
  15. PREMPRO [Concomitant]
  16. NEXIUM [Concomitant]
  17. STERAPRED DS [Concomitant]
  18. AMOXICILLIN [Concomitant]
  19. PLAVIX [Concomitant]
  20. ASPIRIN [Concomitant]
  21. MULTI-VITAMIN [Concomitant]
  22. MAGNEVIST [Suspect]
     Indication: NUCLEAR MAGNETIC RESONANCE IMAGING
     Dates: start: 20020924, end: 20020924
  23. FE-TINIC [POLYSACCHARIDE-IRON COMPLEX] [Concomitant]
  24. RENAGEL [Concomitant]
  25. RHINOCORT [Concomitant]
  26. GYNAZOLE [Concomitant]
  27. COUMADIN [Concomitant]
  28. PROCRIT [Concomitant]
  29. PREMPRO [Concomitant]
  30. FERROUS SULFATE TAB [Concomitant]
  31. LEVOXYL [Concomitant]
  32. LIPITOR [Concomitant]
  33. RENAGEL [Concomitant]
     Indication: RENAL DISORDER
     Dates: start: 19970101
  34. ATENOLOL [Concomitant]
  35. ACIPHEX [Concomitant]
  36. ACTONEL [Concomitant]
  37. ZITHROMAX [Concomitant]
  38. VIOXX [Concomitant]
  39. ROCALTROL [Concomitant]
  40. PROMID [Concomitant]
  41. ALLEGRA [Concomitant]
  42. ASTELIN [Concomitant]
  43. ANCEF [Concomitant]
  44. METOPROLOL SUCCINATE [Concomitant]
  45. ZELNORM [Concomitant]
  46. MINOXIDIL [Concomitant]
  47. PHOSLO [Concomitant]

REACTIONS (28)
  - SKIN TIGHTNESS [None]
  - DEFORMITY [None]
  - MITRAL VALVE DISEASE [None]
  - NEPHROGENIC SYSTEMIC FIBROSIS [None]
  - MUSCULOSKELETAL STIFFNESS [None]
  - JOINT STIFFNESS [None]
  - MUSCULAR WEAKNESS [None]
  - SKIN HYPERTROPHY [None]
  - SKIN HYPERPIGMENTATION [None]
  - PULMONARY FIBROSIS [None]
  - SKIN MASS [None]
  - ARTHROPATHY [None]
  - HYPOAESTHESIA [None]
  - MOBILITY DECREASED [None]
  - OEDEMA PERIPHERAL [None]
  - RASH PAPULAR [None]
  - SKIN FIBROSIS [None]
  - INDURATION [None]
  - GAIT DISTURBANCE [None]
  - MUSCLE TIGHTNESS [None]
  - PRURITUS GENERALISED [None]
  - PAIN IN EXTREMITY [None]
  - PAIN [None]
  - SKIN INDURATION [None]
  - PIGMENTATION DISORDER [None]
  - DRY SKIN [None]
  - SKIN PLAQUE [None]
  - SKIN DISCOLOURATION [None]
